FAERS Safety Report 10763611 (Version 1)
Quarter: 2015Q1

REPORT INFORMATION
  Report Type: Report from Study
  Country: US (occurrence: US)
  Receive Date: 20150204
  Receipt Date: 20150204
  Transmission Date: 20150721
  Serious: No
  Sender: FDA-Public Use
  Company Number: US-GLAXOSMITHKLINE-US2015GSK006223

PATIENT
  Sex: Female

DRUGS (4)
  1. DABRAFENIB [Suspect]
     Active Substance: DABRAFENIB
     Indication: CENTRAL NERVOUS SYSTEM LESION
  2. DABRAFENIB [Suspect]
     Active Substance: DABRAFENIB
     Indication: METASTATIC MALIGNANT MELANOMA
  3. DABRAFENIB [Suspect]
     Active Substance: DABRAFENIB
     Indication: LYMPHADENOPATHY
  4. DABRAFENIB [Suspect]
     Active Substance: DABRAFENIB
     Indication: METASTASES TO CENTRAL NERVOUS SYSTEM
     Dosage: 150 MG, BID

REACTIONS (10)
  - Chills [Recovered/Resolved]
  - Keratoacanthoma [Recovered/Resolved]
  - Rash [Recovered/Resolved]
  - Skin lesion [Recovered/Resolved]
  - Melanocytic naevus [Recovered/Resolved]
  - Fatigue [Recovered/Resolved]
  - Acanthosis [Recovered/Resolved]
  - Acrochordon [Recovered/Resolved]
  - Pyrexia [Recovered/Resolved]
  - Hyperkeratosis [Recovered/Resolved]
